FAERS Safety Report 24869620 (Version 2)
Quarter: 2025Q1

REPORT INFORMATION
  Report Type: Other
  Country: CH (occurrence: CH)
  Receive Date: 20250121
  Receipt Date: 20250131
  Transmission Date: 20250408
  Serious: Yes (Hospitalization)
  Sender: B BRAUN
  Company Number: CH-B.Braun Medical Inc.-2169494

PATIENT
  Age: 60 Year
  Sex: Male
  Weight: 85 kg

DRUGS (11)
  1. ACETAMINOPHEN [Suspect]
     Active Substance: ACETAMINOPHEN
     Indication: Back pain
  2. FLUCLOXACILLIN [Suspect]
     Active Substance: FLUCLOXACILLIN
  3. VANCOMYCIN [Concomitant]
     Active Substance: VANCOMYCIN
  4. PIPERACILLIN SODIUM\TAZOBACTAM SODIUM [Concomitant]
     Active Substance: PIPERACILLIN SODIUM\TAZOBACTAM SODIUM
  5. HYDROXYCHLOROQUINE [Concomitant]
     Active Substance: HYDROXYCHLOROQUINE
  6. AZATHIOPRINE [Concomitant]
     Active Substance: AZATHIOPRINE
  7. ADALIMUMAB [Concomitant]
     Active Substance: ADALIMUMAB
  8. PREDNISONE [Concomitant]
     Active Substance: PREDNISONE
  9. KETAMINE [Concomitant]
     Active Substance: KETAMINE
  10. OXYCODONE [Concomitant]
     Active Substance: OXYCODONE
  11. METAMIZOLE [Concomitant]
     Active Substance: METAMIZOLE

REACTIONS (2)
  - Metabolic acidosis [Recovered/Resolved]
  - Off label use [Recovered/Resolved]
